FAERS Safety Report 19896171 (Version 1)
Quarter: 2021Q3

REPORT INFORMATION
  Report Type: Spontaneous
  Country: US (occurrence: US)
  Receive Date: 20210929
  Receipt Date: 20210929
  Transmission Date: 20211014
  Serious: No
  Sender: FDA-Public Use
  Company Number: US-PFIZER INC-2021825087

PATIENT
  Age: 66 Year
  Sex: Female
  Weight: 60.33 kg

DRUGS (2)
  1. HYDROXYZINE PAMOATE. [Suspect]
     Active Substance: HYDROXYZINE PAMOATE
     Indication: URTICARIA
     Dosage: 2 DOSE FORM (SHE TAKES 2 AT NIGHT)
  2. ZYRTEC [Suspect]
     Active Substance: CETIRIZINE HYDROCHLORIDE
     Indication: URTICARIA
     Dosage: UNK

REACTIONS (3)
  - Wrong strength [Unknown]
  - Body height decreased [Unknown]
  - Drug ineffective [Unknown]
